FAERS Safety Report 4372571-5 (Version None)
Quarter: 2004Q2

REPORT INFORMATION
  Report Type: 
  Country: None (occurrence: None)
  Receive Date: 20040526
  Receipt Date: 20040513
  Transmission Date: 20050107
  Serious: Yes (Other)
  Sender: FDA-Public Use
  Company Number: FR-JNJFOC-20040405765

PATIENT
  Age: 60 Year
  Sex: Male
  Weight: 60 kg

DRUGS (6)
  1. REMICADE [Suspect]
     Indication: RHEUMATOID ARTHRITIS
     Dosage: 180 MG, INTRAVENOUS
     Route: 042
     Dates: start: 20020305, end: 20040121
  2. METHOTREXATE [Suspect]
     Indication: RHEUMATOID ARTHRITIS
     Dosage: 1 IN 1 WEEK, ORAL
     Route: 048
     Dates: start: 20020731
  3. FOLIC ACID [Concomitant]
  4. PREDNISONE TAB [Concomitant]
  5. ALPRESS (PRAZOSIN HYDROCHLORIDE) [Concomitant]
  6. ATACAND [Concomitant]

REACTIONS (1)
  - HODGKIN'S DISEASE [None]
